FAERS Safety Report 4383969-3 (Version None)
Quarter: 2004Q2

REPORT INFORMATION
  Report Type: 
  Country: None (occurrence: None)
  Receive Date: 20040621
  Receipt Date: 20040607
  Transmission Date: 20050107
  Serious: Yes (Other)
  Sender: FDA-Public Use
  Company Number: US-2004-026688

PATIENT
  Age: 36 Year
  Sex: Female

DRUGS (3)
  1. BETASERON [Suspect]
     Indication: MULTIPLE SCLEROSIS
     Dosage: 8 MIU, EVERY 2D, SUBCUTANEOUS
     Route: 058
     Dates: start: 20040419
  2. WELLBUTRIN SR [Suspect]
     Indication: MULTIPLE SCLEROSIS
     Dosage: 150 MG, 1 X/DAY, ORAL
     Route: 048
     Dates: start: 20040502
  3. PROVIGIL [Concomitant]

REACTIONS (6)
  - ARRHYTHMIA [None]
  - BLOOD PRESSURE INCREASED [None]
  - CARDIAC FLUTTER [None]
  - DRUG INTERACTION POTENTIATION [None]
  - EXTRASYSTOLES [None]
  - LIVER FUNCTION TEST ABNORMAL [None]
